FAERS Safety Report 7337688-1 (Version None)
Quarter: 2011Q1

REPORT INFORMATION
  Report Type: 
  Country: None (occurrence: None)
  Receive Date: 20110224
  Receipt Date: 20110216
  Transmission Date: 20110831
  Serious: Yes (Death, Life-Threatening, Hospitalization)
  Sender: FDA-Public Use
  Company Number: TAJPN-10-0573

PATIENT
  Age: 62 Year
  Sex: Female
  Weight: 90 kg

DRUGS (3)
  1. ABRAXANE [Suspect]
     Indication: BREAST CANCER METASTATIC
     Dosage: 361 MG
     Dates: start: 20101007
  2. FEMARA [Concomitant]
  3. NAUZELIN  (DOMPERIDONE) [Concomitant]

REACTIONS (11)
  - ALTERED STATE OF CONSCIOUSNESS [None]
  - RESPIRATION ABNORMAL [None]
  - METABOLIC ACIDOSIS [None]
  - RENAL IMPAIRMENT [None]
  - WHITE BLOOD CELL COUNT DECREASED [None]
  - AGONAL RHYTHM [None]
  - DISSEMINATED INTRAVASCULAR COAGULATION [None]
  - BLOOD PRESSURE INCREASED [None]
  - SEPSIS [None]
  - CARDIO-RESPIRATORY ARREST [None]
  - GRANULOCYTOPENIA [None]
